FAERS Safety Report 9165088 (Version 2)
Quarter: 2013Q2

REPORT INFORMATION
  Report Type: Report from Study
  Country: US (occurrence: US)
  Receive Date: 20130315
  Receipt Date: 20130425
  Transmission Date: 20140414
  Serious: No
  Sender: FDA-Public Use
  Company Number: US-009507513-1303USA006706

PATIENT
  Sex: Female

DRUGS (3)
  1. BOCEPREVIR [Suspect]
     Indication: CHRONIC HEPATITIS C
     Dosage: UNK
  2. RIBAVIRIN [Suspect]
     Indication: CHRONIC HEPATITIS C
     Dosage: 1200MG PER DAY IN DIVIDED DOSES
     Dates: start: 20120920
  3. PEGINTERFERON ALFA-2A [Suspect]
     Indication: CHRONIC HEPATITIS C
     Dosage: 180 MICROGRAM, QW
     Route: 058
     Dates: start: 20120920

REACTIONS (9)
  - Abdominal pain upper [Unknown]
  - Pharyngitis streptococcal [Unknown]
  - Oropharyngeal pain [Unknown]
  - Oral mucosal blistering [Unknown]
  - Vision blurred [Unknown]
  - Ocular vascular disorder [Unknown]
  - Fatigue [Unknown]
  - Dry mouth [Unknown]
  - Rash macular [Unknown]
